FAERS Safety Report 4310571-1 (Version None)
Quarter: 2004Q1

REPORT INFORMATION
  Report Type: 
  Country: None (occurrence: None)
  Receive Date: 20040303
  Receipt Date: 20040219
  Transmission Date: 20041129
  Serious: Yes (Hospitalization, Other)
  Sender: FDA-Public Use
  Company Number: DE-GLAXOSMITHKLINE-D0043209A

PATIENT
  Age: 70 Year
  Sex: Male
  Weight: 81.2 kg

DRUGS (5)
  1. AVANDIA [Suspect]
     Indication: DIABETES MELLITUS NON-INSULIN-DEPENDENT
     Dosage: 4MG PER DAY
     Route: 048
     Dates: start: 20000828, end: 20040214
  2. BLOPRESS [Concomitant]
     Indication: HYPERTENSION
     Dosage: 8MG UNKNOWN
     Route: 048
     Dates: start: 20000101, end: 20040221
  3. CABERGOLINE [Concomitant]
     Indication: PARKINSON'S DISEASE
     Dosage: 2MG UNKNOWN
     Route: 048
     Dates: start: 20030101, end: 20040201
  4. TOREM [Concomitant]
     Indication: CARDIAC FAILURE
     Dosage: 10MG UNKNOWN
     Route: 048
     Dates: start: 20000101, end: 20040201
  5. VIOXX [Concomitant]
     Indication: OSTEOARTHRITIS
     Dosage: 20MG UNKNOWN
     Route: 048
     Dates: start: 20000101, end: 20040201

REACTIONS (3)
  - JAUNDICE [None]
  - PANCREATIC CARCINOMA [None]
  - WEIGHT DECREASED [None]
